FAERS Safety Report 10086901 (Version 1)
Quarter: 2014Q2

REPORT INFORMATION
  Report Type: Spontaneous
  Country: US (occurrence: US)
  Receive Date: 20140418
  Receipt Date: 20140418
  Transmission Date: 20141212
  Serious: Yes (Hospitalization)
  Sender: FDA-Public Use
  Company Number: US-TARO-2014P1003244

PATIENT
  Age: 66 Year
  Sex: Female
  Weight: 62.14 kg

DRUGS (7)
  1. LAMOTRIGINE TABLETS 100 MG [Suspect]
     Indication: BIPOLAR DISORDER
     Route: 048
     Dates: start: 2010
  2. IRON [Concomitant]
     Dates: start: 201402
  3. POTASSIUM [Concomitant]
  4. METFORMIN HCL [Concomitant]
  5. KLONOPIN [Concomitant]
  6. LOSARTAN/HYDROCHLOROTHIAZIDE [Concomitant]
  7. SIMVASTATIN [Concomitant]

REACTIONS (14)
  - Dizziness [Recovering/Resolving]
  - Headache [Recovering/Resolving]
  - Vision blurred [Unknown]
  - Coordination abnormal [Unknown]
  - Insomnia [Unknown]
  - Abdominal pain [Unknown]
  - Back pain [Recovering/Resolving]
  - Fatigue [Unknown]
  - Dry mouth [Unknown]
  - Chronic obstructive pulmonary disease [Unknown]
  - Asthenia [Unknown]
  - Haemoglobin decreased [Unknown]
  - Gastric antral vascular ectasia [Unknown]
  - Chondropathy [Unknown]
